FAERS Safety Report 4775335-3 (Version None)
Quarter: 2005Q3

REPORT INFORMATION
  Report Type: 
  Country: None (occurrence: None)
  Receive Date: 20050922
  Receipt Date: 20050914
  Transmission Date: 20060218
  Serious: Yes (Hospitalization)
  Sender: FDA-Public Use
  Company Number: SE-BOEHRINGER INGELHEIM PHARMACEUTICALS, INC.-2005-SW-00400SW

PATIENT
  Sex: Male

DRUGS (5)
  1. PERSANTIN DEPOT 200 MG [Suspect]
     Indication: CEREBROVASCULAR ACCIDENT
  2. CITALOPRAM [Suspect]
     Indication: DEPRESSION
     Route: 048
  3. ASPIRIN [Suspect]
     Indication: CEREBROVASCULAR ACCIDENT
     Route: 048
  4. FELODIPINE [Concomitant]
  5. SIMVASTATIN [Concomitant]

REACTIONS (4)
  - GASTRIC ULCER [None]
  - HAEMATEMESIS [None]
  - HAEMORRHAGE [None]
  - OESOPHAGITIS [None]
